FAERS Safety Report 8257570-5 (Version None)
Quarter: 2012Q1

REPORT INFORMATION
  Report Type: 
  Country: None (occurrence: None)
  Receive Date: 20120330
  Receipt Date: 20120330
  Transmission Date: 20120608
  Serious: No
  Sender: FDA-Public Use
  Company Number: None

PATIENT
  Age: 78 Year
  Sex: Male
  Weight: 88.905 kg

DRUGS (1)
  1. INDOMETHACIN [Suspect]
     Indication: GOUT
     Dosage: 1 3 TIMES DAILY MOUTH
     Route: 048
     Dates: start: 20120203, end: 20120220

REACTIONS (3)
  - DIZZINESS [None]
  - HYPERACUSIS [None]
  - DISORIENTATION [None]
